FAERS Safety Report 16391149 (Version 1)
Quarter: 2019Q2

REPORT INFORMATION
  Report Type: Spontaneous
  Country: US (occurrence: US)
  Receive Date: 20190604
  Receipt Date: 20190604
  Transmission Date: 20190711
  Serious: No
  Sender: FDA-Public Use
  Company Number: US-KALA PHARAMACEUTICALS-2019KLA00005

PATIENT

DRUGS (1)
  1. INVELTYS [Suspect]
     Active Substance: LOTEPREDNOL ETABONATE
     Dosage: UNK
     Dates: start: 2019

REACTIONS (1)
  - Punctate keratitis [Unknown]

NARRATIVE: CASE EVENT DATE: 2019
